FAERS Safety Report 8036887 (Version 2)
Quarter: 2013Q2

REPORT INFORMATION
  Report Type: Spontaneous
  Country: US (occurrence: None)
  Receive Date: 20110707
  Receipt Date: 20120705
  Transmission Date: 20140414
  Serious: Yes (Hospitalization)
  Sender: FDA-Public Use
  Company Number: US-CYPR-2011-000011

PATIENT
  Age: 75 Year
  Sex: Male
  Weight: 81.2 kg

DRUGS (7)
  1. CLOPIDOGREL [Suspect]
     Indication: ANTIPLATELET THERAPY
     Route: 048
     Dates: start: 20100923
  2. ASPIRIN [Suspect]
     Indication: CORONARY ARTERY DISEASE
     Route: 048
     Dates: start: 20091009
  3. TOPROL XL [Concomitant]
  4. TRICOR [Concomitant]
  5. WELCHOL [Concomitant]
  6. CHOLINE FENOFIBRATE [Concomitant]
  7. CYPHER STENT [Concomitant]

REACTIONS (1)
  - Coronary artery restenosis [None]
